FAERS Safety Report 6901405-7 (Version None)
Quarter: 2010Q3

REPORT INFORMATION
  Report Type: 
  Country: None (occurrence: None)
  Receive Date: 20100803
  Receipt Date: 20080129
  Transmission Date: 20110219
  Serious: Yes (Other)
  Sender: FDA-Public Use
  Company Number: US-PFIZER INC-2008005980

PATIENT
  Sex: Female
  Weight: 63.181 kg

DRUGS (5)
  1. LYRICA [Suspect]
     Indication: PAIN
     Dates: end: 20080113
  2. XANAX [Concomitant]
  3. ALL OTHER THERAPEUTIC PRODUCTS [Concomitant]
  4. VICODIN [Concomitant]
  5. NEURONTIN [Concomitant]

REACTIONS (2)
  - BALANCE DISORDER [None]
  - DRUG INEFFECTIVE [None]
